FAERS Safety Report 7142028-7 (Version None)
Quarter: 2010Q4

REPORT INFORMATION
  Report Type: 
  Country: None (occurrence: None)
  Receive Date: 20101207
  Receipt Date: 20101201
  Transmission Date: 20110411
  Serious: Yes (Other)
  Sender: FDA-Public Use
  Company Number: A0897212A

PATIENT
  Age: 79 Year
  Sex: Female

DRUGS (6)
  1. ADVAIR [Suspect]
     Indication: ASTHMA
     Dosage: 1PUFF TWICE PER DAY
     Route: 055
     Dates: start: 20100601
  2. RESTASIS [Concomitant]
  3. FLONASE [Concomitant]
  4. TUSSIN [Concomitant]
  5. METHYLDOPA [Concomitant]
  6. ALLERGY INJECTION [Concomitant]

REACTIONS (4)
  - COUGH [None]
  - DYSPHONIA [None]
  - LARYNGEAL OEDEMA [None]
  - STOMATITIS [None]
